FAERS Safety Report 10234565 (Version 1)
Quarter: 2014Q2

REPORT INFORMATION
  Report Type: Spontaneous
  Country: GB (occurrence: GB)
  Receive Date: 20140613
  Receipt Date: 20140613
  Transmission Date: 20141212
  Serious: Yes (Life-Threatening)
  Sender: FDA-Public Use
  Company Number: GB-RANBAXY-2014RR-82214

PATIENT
  Age: 66 Year
  Sex: Male

DRUGS (3)
  1. CO-AMOXICLAV [Suspect]
     Indication: NEUTROPENIC SEPSIS
     Dosage: 625 MG, TID
     Route: 048
     Dates: start: 20140506, end: 20140515
  2. OXYCODONE [Concomitant]
     Indication: PRODUCT USED FOR UNKNOWN INDICATION
     Dosage: (20MG MODIFIED RELEASE AND 10MG MODIFIIED RELEASE TABLET)
     Route: 048
  3. TAZOCIN [Concomitant]
     Indication: NEUTROPENIC SEPSIS
     Dosage: COURSE COMPLETE PRIOR TO SUSPECTED CLOSTRIDIUM DIFFICILE
     Route: 042
     Dates: start: 20140501, end: 20140505

REACTIONS (3)
  - Clostridium difficile infection [Unknown]
  - Acute myeloid leukaemia [Unknown]
  - Diarrhoea [Unknown]
